FAERS Safety Report 7215080-8 (Version None)
Quarter: 2011Q1

REPORT INFORMATION
  Report Type: 
  Country: None (occurrence: None)
  Receive Date: 20110107
  Receipt Date: 20100813
  Transmission Date: 20110831
  Serious: No
  Sender: FDA-Public Use
  Company Number: A0875771A

PATIENT
  Age: 74 Year
  Sex: Female

DRUGS (4)
  1. LOVAZA [Suspect]
     Dosage: 2G PER DAY
     Route: 048
     Dates: start: 20100601
  2. PREVACID [Concomitant]
  3. PLAVIX [Concomitant]
  4. PRAVASTATIN [Concomitant]

REACTIONS (5)
  - PANIC REACTION [None]
  - OROPHARYNGEAL PAIN [None]
  - DRUG ADMINISTRATION ERROR [None]
  - FOREIGN BODY [None]
  - CHOKING SENSATION [None]
